FAERS Safety Report 9106476 (Version 1)
Quarter: 2013Q1

REPORT INFORMATION
  Report Type: Spontaneous
  Country: US (occurrence: US)
  Receive Date: 20130219
  Receipt Date: 20130219
  Transmission Date: 20140127
  Serious: No
  Sender: FDA-Public Use
  Company Number: US-ASTRAZENECA-2013SE09014

PATIENT
  Age: 52 Year
  Sex: Female
  Weight: 73.9 kg

DRUGS (1)
  1. FASLODEX [Suspect]
     Indication: BREAST CANCER METASTATIC
     Route: 030
     Dates: start: 20130131

REACTIONS (5)
  - Oral pain [Unknown]
  - Lip pain [Unknown]
  - Paraesthesia [Unknown]
  - Headache [Unknown]
  - Rash [Unknown]
